FAERS Safety Report 9970500 (Version 1)
Quarter: 2014Q1

REPORT INFORMATION
  Report Type: Report from Study
  Country: US (occurrence: US)
  Receive Date: 20140306
  Receipt Date: 20140306
  Transmission Date: 20141002
  Serious: No
  Sender: FDA-Public Use
  Company Number: US-ABBVIE-13P-163-1150548-00

PATIENT
  Age: 34 Year
  Sex: Female

DRUGS (11)
  1. HUMIRA [Suspect]
     Indication: PSORIASIS
     Dosage: LOADING DOSE
     Dates: start: 20130919
  2. ARMOUR THYROID [Concomitant]
     Indication: HYPOTHYROIDISM
  3. LISINOPRIL [Concomitant]
     Indication: HYPERTENSION
  4. CELEBREX [Concomitant]
     Indication: PAIN
  5. ATENOLOL [Concomitant]
     Indication: MIGRAINE PROPHYLAXIS
  6. CITALOPRAM [Concomitant]
     Indication: ANXIETY
  7. CITALOPRAM [Concomitant]
     Indication: DEPRESSION
  8. FISH OIL [Concomitant]
     Indication: PRODUCT USED FOR UNKNOWN INDICATION
  9. B3 [Concomitant]
     Indication: PRODUCT USED FOR UNKNOWN INDICATION
  10. GLUCOSAMINE [Concomitant]
     Indication: PRODUCT USED FOR UNKNOWN INDICATION
  11. ONE A DAY WOMEN^S [Concomitant]
     Indication: PRODUCT USED FOR UNKNOWN INDICATION

REACTIONS (4)
  - Dizziness [Recovered/Resolved]
  - Nausea [Recovered/Resolved]
  - Back pain [Recovered/Resolved]
  - Hunger [Recovering/Resolving]
